FAERS Safety Report 9133566 (Version 1)
Quarter: 2013Q1

REPORT INFORMATION
  Report Type: Spontaneous
  Country: US (occurrence: US)
  Receive Date: 20130116
  Receipt Date: 20130116
  Transmission Date: 20140127
  Serious: No
  Sender: FDA-Public Use
  Company Number: US-009507513-1301USA005916

PATIENT
  Sex: Female

DRUGS (2)
  1. ZETIA [Suspect]
     Indication: HYPERCHOLESTEROLAEMIA
     Dosage: 10 MG, QD
     Route: 048
     Dates: start: 20121011, end: 20130111
  2. ONGLYZA [Concomitant]

REACTIONS (3)
  - Alopecia [Not Recovered/Not Resolved]
  - Pruritus generalised [Not Recovered/Not Resolved]
  - Dry skin [Not Recovered/Not Resolved]
